FAERS Safety Report 9255952 (Version 2)
Quarter: 2013Q4

REPORT INFORMATION
  Report Type: Spontaneous
  Country: DK (occurrence: GB)
  Receive Date: 20130425
  Receipt Date: 20131028
  Transmission Date: 20140711
  Serious: Yes (Life-Threatening, Hospitalization, Other)
  Sender: FDA-Public Use
  Company Number: GB-FRI-1000044680

PATIENT
  Age: 22 Year
  Sex: Female

DRUGS (4)
  1. CITALOPRAM [Suspect]
     Indication: ANXIETY
     Dosage: 20 MG
     Route: 048
     Dates: start: 20130318, end: 20130318
  2. CITALOPRAM [Suspect]
     Indication: STRESS
  3. ZIMOVANE [Concomitant]
     Dosage: 0.5 DF
  4. CONTRACEPTIVE IMPLANT [Concomitant]

REACTIONS (16)
  - Hemiparesis [Recovered/Resolved]
  - Dizziness [Recovered/Resolved]
  - Sensory loss [Recovered/Resolved]
  - Sensation of heaviness [Recovered/Resolved]
  - Dysarthria [Recovered/Resolved]
  - Incoherent [Recovered/Resolved]
  - Visual impairment [Recovered/Resolved]
  - Pupillary reflex impaired [Recovered/Resolved]
  - Vision blurred [Recovered/Resolved]
  - Dystonia [Recovered/Resolved]
  - Panic reaction [Recovered/Resolved]
  - Chest discomfort [Recovered/Resolved]
  - Hypoaesthesia [Recovered/Resolved]
  - Paraesthesia [Recovered/Resolved]
  - Hypotension [Recovered/Resolved]
  - Mobility decreased [Recovered/Resolved]
